FAERS Safety Report 20416399 (Version 2)
Quarter: 2022Q2

REPORT INFORMATION
  Report Type: Report from Study
  Country: US (occurrence: None)
  Receive Date: 20220202
  Receipt Date: 20220412
  Transmission Date: 20220721
  Serious: Yes (Hospitalization, Other)
  Sender: FDA-Public Use
  Company Number: US-ROCHE-2945240

PATIENT
  Age: 72 Year
  Sex: Female
  Weight: 80.8 kg

DRUGS (11)
  1. VENETOCLAX [Suspect]
     Active Substance: VENETOCLAX
     Indication: Chronic lymphocytic leukaemia
     Dosage: DAYS 1-7 CYCLE 3?ON 19/OCT/2021, SHE RECEIVED LAST DOSE OF VENETOCLAX PRIOR TO ONSET OF SERIOUS ADVE
     Route: 048
     Dates: start: 20210621
  2. VENETOCLAX [Suspect]
     Active Substance: VENETOCLAX
     Dosage: DAYS 8-14 CYCLE 3
     Route: 048
  3. VENETOCLAX [Suspect]
     Active Substance: VENETOCLAX
     Dosage: DAYS 15- 21, CYCLE 3
     Route: 048
  4. VENETOCLAX [Suspect]
     Active Substance: VENETOCLAX
     Dosage: DAYS 15-21 CYCLE 3
     Route: 048
  5. VENETOCLAX [Suspect]
     Active Substance: VENETOCLAX
     Dosage: DAYS 1-28 CYCLES 4-14
     Route: 048
  6. OBINUTUZUMAB [Suspect]
     Active Substance: OBINUTUZUMAB
     Indication: Chronic lymphocytic leukaemia
     Dosage: ON C1D1?ON 22/SEP/2021, SHE RECEIVED LAST DOSE OF OBINITUZUMAB PRIOR TO ONSET OF SERIOUS ADVERSE EVE
     Route: 042
     Dates: start: 20210621
  7. OBINUTUZUMAB [Suspect]
     Active Substance: OBINUTUZUMAB
     Dosage: ON C1D2
     Route: 042
  8. OBINUTUZUMAB [Suspect]
     Active Substance: OBINUTUZUMAB
     Dosage: ON C1D8 + C1D15, C2-6D1
     Route: 042
  9. OBINUTUZUMAB [Suspect]
     Active Substance: OBINUTUZUMAB
     Dosage: 10-JAN-2022
     Route: 042
     Dates: start: 20210817
  10. IBRUTINIB [Suspect]
     Active Substance: IBRUTINIB
     Indication: Chronic lymphocytic leukaemia
     Dosage: FOR 15 CYCLES?ON 19/OCT/2021, SHE RECEIVED LAST DOSE OF IBRITUNIB PRIOR TO ONSET OF SERIOUS ADVERSE
     Route: 048
  11. IBRUTINIB [Suspect]
     Active Substance: IBRUTINIB
     Dosage: 10-JAN-2022
     Route: 048
     Dates: start: 20211017

REACTIONS (5)
  - Hypokalaemia [Unknown]
  - Hypomagnesaemia [Unknown]
  - Hypertension [Unknown]
  - Diarrhoea [Unknown]
  - Hypomagnesaemia [Unknown]

NARRATIVE: CASE EVENT DATE: 20211013
